FAERS Safety Report 9513133 (Version 2)
Quarter: 2014Q1

REPORT INFORMATION
  Report Type: Spontaneous
  Country: US (occurrence: None)
  Receive Date: 20130305
  Receipt Date: 20140306
  Transmission Date: 20141002
  Serious: Yes (Other)
  Sender: FDA-Public Use
  Company Number: 163-21880-12101572

PATIENT
  Age: 82 Year
  Sex: Male
  Weight: 48.08 kg

DRUGS (12)
  1. REVLIMID [Suspect]
     Indication: PLASMA CELL MYELOMA
     Dosage: 15 MG, 21 IN 28 D, PO
     Route: 048
     Dates: start: 20070517
  2. DEXAMETHASONE (DEXAMETHASONE) [Concomitant]
  3. LORTAB ELIXIR (VICODIN) [Concomitant]
  4. ASPIRIN (ACETYLSALICYLIC ACID) [Concomitant]
  5. COMPAZINE (PROCHLORPERAZINE EDISYLATE) [Concomitant]
  6. LEVOTHYROXINE (LEVOTHYROXINE) [Concomitant]
  7. POTASSIUM CHLORIDE (POTASSIUM CHLORIDE) [Concomitant]
  8. PROCHLORPERAZINE (PROCHLORPERAZINE) [Concomitant]
  9. FENTANYL (FENTANYL) [Concomitant]
  10. LASIX (FUROSEMIDE) [Concomitant]
  11. CIPRO (CIPROFLOXACIN) [Concomitant]
  12. ZOFRAN (ONDANSETRON HYDROCHLORIDE) [Concomitant]

REACTIONS (3)
  - Tooth disorder [None]
  - Drug dose omission [None]
  - Neuropathy peripheral [None]
